FAERS Safety Report 22215212 (Version 2)
Quarter: 2023Q2

REPORT INFORMATION
  Report Type: Spontaneous
  Country: US (occurrence: None)
  Receive Date: 20230415
  Receipt Date: 20230521
  Transmission Date: 20230722
  Serious: No
  Sender: FDA-Public Use
  Company Number: 2023A073534

PATIENT

DRUGS (1)
  1. BYDUREON BCISE [Suspect]
     Active Substance: EXENATIDE
     Dosage: UNKNOWN

REACTIONS (4)
  - Injection site pruritus [Recovered/Resolved]
  - Drug dose omission by device [Unknown]
  - Incorrect dose administered by device [Unknown]
  - Device issue [Unknown]
